FAERS Safety Report 11096411 (Version 1)
Quarter: 2015Q2

REPORT INFORMATION
  Report Type: Spontaneous
  Country: US (occurrence: None)
  Receive Date: 20150506
  Receipt Date: 20150506
  Transmission Date: 20150821
  Serious: Yes (Hospitalization)
  Sender: FDA-Public Use
  Company Number: None

PATIENT
  Age: 43 Year
  Sex: Male
  Weight: 68.49 kg

DRUGS (4)
  1. PROPECIA [Concomitant]
     Active Substance: FINASTERIDE
  2. DORYX [Suspect]
     Active Substance: DOXYCYCLINE HYCLATE
     Indication: ROSACEA
     Route: 048
     Dates: start: 20141124, end: 20150205
  3. VITAMIN D [Concomitant]
     Active Substance: CHOLECALCIFEROL
  4. CENTRUM SILVER [Concomitant]
     Active Substance: VITAMINS

REACTIONS (3)
  - Intestinal ulcer [None]
  - Enteritis [None]
  - Abdominal pain [None]

NARRATIVE: CASE EVENT DATE: 20150408
